FAERS Safety Report 12947984 (Version 2)
Quarter: 2017Q1

REPORT INFORMATION
  Report Type: Report from Study
  Country: BR (occurrence: BR)
  Receive Date: 20161116
  Receipt Date: 20170207
  Transmission Date: 20170428
  Serious: Yes (Other)
  Sender: FDA-Public Use
  Company Number: PHHY2016BR148661

PATIENT
  Age: 69 Year
  Sex: Male
  Weight: 53 kg

DRUGS (1)
  1. EXJADE [Suspect]
     Active Substance: DEFERASIROX
     Indication: MYELODYSPLASTIC SYNDROME
     Dosage: 2000 MG, QD, (4 DISPERSIBLE TABLETS) (32 MG/ KG)
     Route: 048
     Dates: start: 20101205

REACTIONS (8)
  - Weight decreased [Unknown]
  - Asthenia [Unknown]
  - Pyrexia [Unknown]
  - Serum ferritin increased [Unknown]
  - Dysentery [Unknown]
  - Product quality issue [Unknown]
  - Decreased appetite [Unknown]
  - Burning sensation [Unknown]

NARRATIVE: CASE EVENT DATE: 20161022
